FAERS Safety Report 6535055-1 (Version None)
Quarter: 2010Q1

REPORT INFORMATION
  Report Type: 
  Country: None (occurrence: None)
  Receive Date: 20100111
  Receipt Date: 20100111
  Transmission Date: 20100710
  Serious: No
  Sender: FDA-Public Use
  Company Number: None

PATIENT
  Age: 36 Year
  Sex: Male
  Weight: 74.8435 kg

DRUGS (1)
  1. AVELOX [Suspect]
     Indication: EAR INFECTION
     Dosage: ONE 400MG DAILY PO
     Route: 048
     Dates: start: 20091221, end: 20091223

REACTIONS (3)
  - GAIT DISTURBANCE [None]
  - MOVEMENT DISORDER [None]
  - TENDONITIS [None]
